FAERS Safety Report 11867690 (Version 2)
Quarter: 2015Q4

REPORT INFORMATION
  Report Type: Report from Study
  Country: RU (occurrence: RU)
  Receive Date: 20151224
  Receipt Date: 20151229
  Transmission Date: 20160305
  Serious: Yes (Other)
  Sender: FDA-Public Use
  Company Number: RU-JNJFOC-20150120973

PATIENT
  Sex: Female
  Weight: 97 kg

DRUGS (14)
  1. XARELTO [Suspect]
     Active Substance: RIVAROXABAN
     Indication: CEREBROVASCULAR ACCIDENT PROPHYLAXIS
     Route: 048
     Dates: start: 20140925, end: 20141015
  2. BETALOC ZOK [Concomitant]
     Active Substance: METOPROLOL SUCCINATE
     Route: 065
     Dates: start: 2012
  3. PRESTARIUM [Concomitant]
     Active Substance: PERINDOPRIL
     Dosage: 5 MG DAILY DOSE
     Route: 065
     Dates: start: 1995
  4. XARELTO [Suspect]
     Active Substance: RIVAROXABAN
     Indication: THROMBOSIS PROPHYLAXIS
     Route: 048
     Dates: start: 20140925, end: 20141015
  5. PROPANORM [Concomitant]
     Active Substance: PROPAFENONE
     Dates: start: 20150512, end: 20150512
  6. THROMBO ASS [Concomitant]
     Active Substance: ASPIRIN
     Route: 048
     Dates: start: 1995, end: 20140924
  7. XARELTO [Suspect]
     Active Substance: RIVAROXABAN
     Indication: ATRIAL FIBRILLATION
     Route: 048
     Dates: start: 20141015
  8. XARELTO [Suspect]
     Active Substance: RIVAROXABAN
     Indication: ATRIAL FIBRILLATION
     Route: 048
     Dates: start: 20140925, end: 20141015
  9. XARELTO [Suspect]
     Active Substance: RIVAROXABAN
     Indication: THROMBOSIS PROPHYLAXIS
     Route: 048
     Dates: start: 20141015
  10. XARELTO [Suspect]
     Active Substance: RIVAROXABAN
     Indication: CEREBROVASCULAR ACCIDENT PROPHYLAXIS
     Route: 048
     Dates: start: 20141015
  11. PROPANORM [Concomitant]
     Active Substance: PROPAFENONE
     Dosage: 300 MG DAILY DOSE
     Dates: start: 20141220, end: 20141221
  12. AMIODARONE [Concomitant]
     Active Substance: AMIODARONE
     Dosage: 200 MG DAILY DOSE
     Route: 065
     Dates: start: 20140928
  13. PROPANORM [Concomitant]
     Active Substance: PROPAFENONE
     Dates: start: 20150512, end: 20150513
  14. INDAPAMIDE. [Concomitant]
     Active Substance: INDAPAMIDE
     Dosage: 2.5 MG DAILY DOSE
     Route: 065
     Dates: start: 1997

REACTIONS (1)
  - Exostosis [Recovered/Resolved]

NARRATIVE: CASE EVENT DATE: 20141015
